FAERS Safety Report 5592880-1 (Version None)
Quarter: 2008Q1

REPORT INFORMATION
  Report Type: 
  Country: None (occurrence: None)
  Receive Date: 20080116
  Receipt Date: 20080109
  Transmission Date: 20080703
  Serious: Yes (Hospitalization)
  Sender: FDA-Public Use
  Company Number: PHBS2008US00650

PATIENT
  Age: 28 Year
  Sex: Male

DRUGS (2)
  1. LIORESAL [Suspect]
     Indication: MUSCLE SPASTICITY
     Dosage: 538.4 MCG/D
     Route: 037
  2. BACLOFEN [Suspect]
     Route: 048

REACTIONS (1)
  - DRUG WITHDRAWAL SYNDROME [None]
